FAERS Safety Report 8768861 (Version 1)
Quarter: 2012Q4

REPORT INFORMATION
  Report Type: 
  Country: US (occurrence: US)
  Receive Date: 20120904
  Receipt Date: 20120904
  Transmission Date: 20130627
  Serious: Yes (Other)
  Sender: FDA-Public Use
  Company Number: US-ALLERGAN-1211770US

PATIENT
  Age: 75 Year
  Sex: Female

DRUGS (7)
  1. BOTOX� [Suspect]
     Indication: SPASMS
     Dosage: UNK, single
     Route: 030
     Dates: start: 20120810, end: 20120810
  2. BLOOD PRESSURE MEDICATION [Concomitant]
     Indication: BLOOD PRESSURE
     Route: 048
  3. PLAVIX                             /01220701/ [Concomitant]
     Indication: DRUG USE FOR UNKNOWN INDICATION
  4. CELEXA                             /00582602/ [Concomitant]
     Indication: DEPRESSION
  5. ASPIRIN [Concomitant]
     Indication: DRUG USE FOR UNKNOWN INDICATION
     Dosage: 81 mg, UNK
     Route: 048
  6. XANAX [Concomitant]
     Indication: ANXIETY
     Route: 048
  7. LAXATIVES [Concomitant]
     Indication: CONSTIPATION
     Dosage: UNK UNK, prn

REACTIONS (9)
  - Oedema peripheral [Unknown]
  - Sensory loss [Unknown]
  - Gastrointestinal pain [Unknown]
  - Alopecia [Unknown]
  - Vomiting [Recovered/Resolved]
  - Pruritus [Unknown]
  - Headache [Unknown]
  - Nausea [Unknown]
  - Diarrhoea [Recovered/Resolved]
